FAERS Safety Report 5912777-4 (Version None)
Quarter: 2008Q4

REPORT INFORMATION
  Report Type: 
  Country: None (occurrence: None)
  Receive Date: 20081008
  Receipt Date: 20080611
  Transmission Date: 20090506
  Serious: No
  Sender: FDA-Public Use
  Company Number: US-ABBOTT-08P-163-0456871-00

PATIENT
  Sex: Male
  Weight: 22.246 kg

DRUGS (7)
  1. DEPAKOTE [Suspect]
     Indication: CONVULSION
     Dosage: 125MG AT 8AM AND 4PM,250MG AT HS
     Route: 048
  2. RISPERIDONE [Concomitant]
     Indication: ABNORMAL BEHAVIOUR
     Dosage: DIVIDED DOSES; CHILD WAS ON ALL THESE MEDS WHEN ADMITTED TO
     Route: 048
  3. HYDROCORTISONE [Concomitant]
     Indication: CEREBRAL PALSY
     Route: 048
  4. FLUROCORTISONE [Concomitant]
     Indication: CEREBRAL PALSY
     Route: 048
  5. MACROGOL [Concomitant]
     Indication: CONSTIPATION
     Route: 048
  6. HYOSCINE [Concomitant]
     Indication: DRUG USE FOR UNKNOWN INDICATION
     Dosage: PATCH
     Route: 061
  7. SERTRALINE [Concomitant]
     Indication: DEPRESSION
     Route: 048

REACTIONS (1)
  - AMMONIA INCREASED [None]
